FAERS Safety Report 4413658-8 (Version None)
Quarter: 2004Q2

REPORT INFORMATION
  Report Type: 
  Country: None (occurrence: None)
  Receive Date: 20040630
  Receipt Date: 20040426
  Transmission Date: 20050107
  Serious: No
  Sender: FDA-Public Use
  Company Number: 04P-163-0258826-00

PATIENT
  Age: 45 Year
  Sex: Female

DRUGS (13)
  1. HUMIRA [Suspect]
     Indication: RHEUMATOID ARTHRITIS
     Dosage: 40 MG, 1 IN 2 WK, SUBCUTANEOUS
     Route: 058
     Dates: start: 20031001
  2. FOLIC ACID [Concomitant]
  3. METHOTREXATE [Concomitant]
  4. SINGULAIR [Concomitant]
  5. SODIUM BICARBONATE [Concomitant]
  6. FEXOFENADINE HYDROCHLORIDE [Concomitant]
  7. COLINASE [Concomitant]
  8. ADVIR [Concomitant]
  9. RANITIDINE HYDROCHLORIDE [Concomitant]
  10. RABEPRAZOLE SODIUM [Concomitant]
  11. ATENOLOL [Concomitant]
  12. LOSARTAN POTASSIUM [Concomitant]
  13. BUTALBITAL W/ ASPIRIN + CAFFEINE [Concomitant]

REACTIONS (1)
  - INJECTION SITE HAEMORRHAGE [None]
